FAERS Safety Report 25282656 (Version 1)
Quarter: 2025Q2

REPORT INFORMATION
  Report Type: Spontaneous
  Country: NL (occurrence: NL)
  Receive Date: 20250508
  Receipt Date: 20250508
  Transmission Date: 20250716
  Serious: Yes (Other)
  Sender: TEVA
  Company Number: None

PATIENT
  Age: 17 Year
  Sex: Female
  Weight: 62 kg

DRUGS (1)
  1. PROPRANOLOL [Suspect]
     Active Substance: PROPRANOLOL HYDROCHLORIDE
     Indication: Migraine
     Dosage: 1 PIECE ONCE A DAY; BRAND NAME NOT SPECIFIED
     Route: 048
     Dates: start: 20240201, end: 20250404

REACTIONS (4)
  - Suicidal ideation [Recovering/Resolving]
  - Mood swings [Recovered/Resolved]
  - Delusion [Recovered/Resolved]
  - Depressed mood [Recovering/Resolving]
